FAERS Safety Report 6903224-4 (Version None)
Quarter: 2010Q3

REPORT INFORMATION
  Report Type: 
  Country: None (occurrence: None)
  Receive Date: 20100803
  Receipt Date: 20080610
  Transmission Date: 20110219
  Serious: No
  Sender: FDA-Public Use
  Company Number: US-PFIZER INC-2008048795

PATIENT
  Sex: Male
  Weight: 90.9 kg

DRUGS (3)
  1. LYRICA [Suspect]
     Indication: NEUROPATHY PERIPHERAL
     Route: 048
     Dates: start: 20080609
  2. METFORMIN/PIOGLITAZONE [Concomitant]
     Indication: DIABETES MELLITUS
  3. GLUCOTROL [Concomitant]

REACTIONS (1)
  - SKIN DISORDER [None]
